FAERS Safety Report 22205515 (Version 1)
Quarter: 2023Q2

REPORT INFORMATION
  Report Type: Report from Study
  Country: CA (occurrence: CA)
  Receive Date: 20230413
  Receipt Date: 20230413
  Transmission Date: 20230722
  Serious: Yes (Other)
  Sender: FDA-Public Use
  Company Number: CA-002147023-NVSC2022CA090418

PATIENT
  Age: 50 Year
  Sex: Male

DRUGS (2)
  1. GLIVEC [Suspect]
     Active Substance: IMATINIB MESYLATE
     Indication: Gastrointestinal stromal tumour
     Dosage: UNK
     Route: 048
     Dates: start: 20210506
  2. GLIVEC [Suspect]
     Active Substance: IMATINIB MESYLATE
     Dosage: 400 MG, BID
     Route: 065

REACTIONS (2)
  - Recurrent cancer [Unknown]
  - Pyrexia [Recovered/Resolved]
